FAERS Safety Report 15393696 (Version 6)
Quarter: 2019Q1

REPORT INFORMATION
  Report Type: Spontaneous
  Country: US (occurrence: US)
  Receive Date: 20180917
  Receipt Date: 20190305
  Transmission Date: 20190417
  Serious: Yes (Hospitalization)
  Sender: FDA-Public Use
  Company Number: US-ACTELION-A-NJ2018-178861

PATIENT
  Age: 49 Year
  Sex: Female
  Weight: 81.63 kg

DRUGS (9)
  1. UPTRAVI [Suspect]
     Active Substance: SELEXIPAG
     Indication: PULMONARY ARTERIAL HYPERTENSION
     Dosage: 400 MCG, BID
     Route: 048
  2. CIMETIDINE [Concomitant]
     Active Substance: CIMETIDINE
  3. METHADONE [Concomitant]
     Active Substance: METHADONE HYDROCHLORIDE
  4. GABAPENTIN. [Concomitant]
     Active Substance: GABAPENTIN
  5. TORSEMIDE. [Concomitant]
     Active Substance: TORSEMIDE
  6. UPTRAVI [Suspect]
     Active Substance: SELEXIPAG
     Dosage: 1000 MCG, BID
     Route: 048
     Dates: start: 20170531
  7. UPTRAVI [Suspect]
     Active Substance: SELEXIPAG
     Dosage: 1600 MCG, BID
     Route: 048
  8. UPTRAVI [Suspect]
     Active Substance: SELEXIPAG
     Dosage: UNK
     Route: 048
  9. SPIRONOLACTONE. [Concomitant]
     Active Substance: SPIRONOLACTONE

REACTIONS (11)
  - Hypokalaemia [Unknown]
  - Electrocardiogram QT prolonged [Unknown]
  - Hypotension [Unknown]
  - Confusional state [Unknown]
  - Encephalopathy [Not Recovered/Not Resolved]
  - Delirium [Recovered/Resolved]
  - Malaise [Unknown]
  - Hospitalisation [Unknown]
  - Seizure [Unknown]
  - Pancytopenia [Recovered/Resolved]
  - Dyspnoea [Unknown]

NARRATIVE: CASE EVENT DATE: 201809
